FAERS Safety Report 5537918-2 (Version None)
Quarter: 2007Q4

REPORT INFORMATION
  Report Type: 
  Country: None (occurrence: None)
  Receive Date: 20071207
  Receipt Date: 20071204
  Transmission Date: 20080405
  Serious: Yes (Hospitalization)
  Sender: FDA-Public Use
  Company Number: IT-ROXANE LABORATORIES, INC-2007-BP-25543RO

PATIENT
  Age: 41 Year
  Sex: Female

DRUGS (7)
  1. CYCLOPHOSPHAMIDE [Suspect]
     Indication: BREAST CANCER METASTATIC
     Dates: start: 20060901
  2. 5-FLUORURACIL [Suspect]
     Indication: BREAST CANCER METASTATIC
     Dates: start: 20060901
  3. EPIRUBICIN [Suspect]
     Indication: BREAST CANCER METASTATIC
     Dates: start: 20060901
  4. HALOPERIDOL [Concomitant]
     Indication: MANIA
  5. OLANZAPINE [Concomitant]
     Indication: MANIA
  6. LORAZEPAM [Concomitant]
     Indication: MANIA
  7. CITALOPRAM HYDROBROMIDE [Concomitant]
     Indication: DEPRESSION
     Dates: start: 20000101

REACTIONS (2)
  - LIVER FUNCTION TEST ABNORMAL [None]
  - MANIA [None]
